FAERS Safety Report 5061252-0 (Version None)
Quarter: 2006Q3

REPORT INFORMATION
  Report Type: 
  Country: None (occurrence: None)
  Receive Date: 20060721
  Receipt Date: 20060721
  Transmission Date: 20061208
  Serious: Yes (Hospitalization, Disabling)
  Sender: FDA-Public Use
  Company Number: None

PATIENT
  Sex: Female
  Weight: 58.514 kg

DRUGS (4)
  1. ORTHO EVRA [Suspect]
     Indication: CONTRACEPTION
     Dosage: 150 MG NORELGESTROMIN 20MG ETHINYL ESTRADIOL ONCE A WEEK
     Dates: start: 20021023
  2. ORTHO EVRA [Suspect]
     Indication: MENSTRUAL DISORDER
     Dosage: 150 MG NORELGESTROMIN 20MG ETHINYL ESTRADIOL ONCE A WEEK
     Dates: start: 20021023
  3. ORTHO EVRA [Suspect]
     Indication: CONTRACEPTION
     Dosage: 150 MG NORELGESTROMIN 20MG ETHINYL ESTRADIOL ONCE A WEEK
     Dates: start: 20050203
  4. ORTHO EVRA [Suspect]
     Indication: MENSTRUAL DISORDER
     Dosage: 150 MG NORELGESTROMIN 20MG ETHINYL ESTRADIOL ONCE A WEEK
     Dates: start: 20050203

REACTIONS (3)
  - CHEST PAIN [None]
  - HYPERTENSION [None]
  - MYOCARDIAL INFARCTION [None]
